FAERS Safety Report 5633532-9 (Version None)
Quarter: 2008Q1

REPORT INFORMATION
  Report Type: 
  Country: None (occurrence: None)
  Receive Date: 20080221
  Receipt Date: 20080207
  Transmission Date: 20080703
  Serious: Yes (Hospitalization)
  Sender: FDA-Public Use
  Company Number: TR-ELI_LILLY_AND_COMPANY-TR200802003594

PATIENT
  Age: 75 Year
  Sex: Female

DRUGS (2)
  1. HUMULIN R [Suspect]
     Dosage: 8 U, 2/D
     Route: 058
     Dates: start: 20070101
  2. LANTUS [Concomitant]
     Dosage: 10 U, EACH EVENING
     Route: 058

REACTIONS (3)
  - BLOOD GLUCOSE INCREASED [None]
  - CEREBROVASCULAR DISORDER [None]
  - VASCULAR OCCLUSION [None]
